FAERS Safety Report 7397608-0 (Version None)
Quarter: 2011Q1

REPORT INFORMATION
  Report Type: 
  Country: None (occurrence: None)
  Receive Date: 20110328
  Receipt Date: 20110316
  Transmission Date: 20110831
  Serious: No
  Sender: FDA-Public Use
  Company Number: 2011-00111

PATIENT
  Sex: Female

DRUGS (1)
  1. ZICAM EXTREME CONGESTION RELIEF [Suspect]
     Dosage: QD X 2 DAYS
     Dates: start: 20110315, end: 20110316

REACTIONS (2)
  - ANOSMIA [None]
  - AGEUSIA [None]
